FAERS Safety Report 15518103 (Version 1)
Quarter: 2018Q4

REPORT INFORMATION
  Report Type: Spontaneous
  Country: US (occurrence: US)
  Receive Date: 20181018
  Receipt Date: 20181018
  Transmission Date: 20190205
  Serious: Yes (Death, Life-Threatening, Hospitalization)
  Sender: FDA-Public Use
  Company Number: None

PATIENT
  Age: 63 Year
  Sex: Female
  Weight: 170.55 kg

DRUGS (1)
  1. BYDUREON [Suspect]
     Active Substance: EXENATIDE
     Indication: TYPE 2 DIABETES MELLITUS
     Dosage: ?          OTHER FREQUENCY:WEEKLY ON SUNDAYS;?
     Route: 058
     Dates: start: 20180909, end: 20180930

REACTIONS (7)
  - Acute kidney injury [None]
  - Pancreatitis acute [None]
  - Blood triglycerides increased [None]
  - Sepsis [None]
  - Diabetic ketoacidosis [None]
  - Acute respiratory failure [None]
  - Atrial fibrillation [None]

NARRATIVE: CASE EVENT DATE: 20180929
